FAERS Safety Report 5794030-5 (Version None)
Quarter: 2008Q2

REPORT INFORMATION
  Report Type: 
  Country: None (occurrence: None)
  Receive Date: 20080627
  Receipt Date: 20080616
  Transmission Date: 20081010
  Serious: Yes (Death, Other)
  Sender: FDA-Public Use
  Company Number: US-PFIZER INC-2008017060

PATIENT
  Sex: Male

DRUGS (1)
  1. BEXTRA [Suspect]
     Indication: MUSCULOSKELETAL PAIN
     Dates: start: 20050101, end: 20050301

REACTIONS (1)
  - MYOCARDIAL INFARCTION [None]
